FAERS Safety Report 21372043 (Version 2)
Quarter: 2022Q4

REPORT INFORMATION
  Report Type: Spontaneous
  Country: TR (occurrence: TR)
  Receive Date: 20220923
  Receipt Date: 20221004
  Transmission Date: 20230113
  Serious: Yes (Hospitalization)
  Sender: FDA-Public Use
  Company Number: TR-GILEAD-2022-0597317

PATIENT
  Age: 41 Year
  Sex: Male
  Weight: 67 kg

DRUGS (1)
  1. BIKTARVY [Suspect]
     Active Substance: BICTEGRAVIR SODIUM\EMTRICITABINE\TENOFOVIR ALAFENAMIDE FUMARATE
     Indication: HIV infection
     Dosage: 1 DOSAGE FORM, ONCE
     Route: 048
     Dates: start: 20220907, end: 20220909

REACTIONS (6)
  - Nodule [Recovered/Resolved]
  - Hypervolaemia [Recovered/Resolved]
  - Nausea [Recovered/Resolved]
  - Akathisia [Recovered/Resolved]
  - Drug hypersensitivity [Recovered/Resolved]
  - Lipase increased [Recovered/Resolved]

NARRATIVE: CASE EVENT DATE: 20220907
